APPROVED DRUG PRODUCT: AZATHIOPRINE
Active Ingredient: AZATHIOPRINE
Strength: 100MG
Dosage Form/Route: TABLET;ORAL
Application: A208687 | Product #004 | TE Code: AB
Applicant: ALKEM LABORATORIES LTD
Approved: Mar 27, 2020 | RLD: No | RS: No | Type: RX